FAERS Safety Report 11276012 (Version 4)
Quarter: 2016Q1

REPORT INFORMATION
  Report Type: Report from Study
  Country: FR (occurrence: FR)
  Receive Date: 20150716
  Receipt Date: 20160204
  Transmission Date: 20160525
  Serious: Yes (Other)
  Sender: FDA-Public Use
  Company Number: FR-CELGENE-FRA-2015071971

PATIENT
  Age: 64 Year
  Sex: Male
  Weight: 91 kg

DRUGS (3)
  1. REVLIMID [Suspect]
     Active Substance: LENALIDOMIDE
     Route: 048
     Dates: end: 20120702
  2. REVLIMID [Suspect]
     Active Substance: LENALIDOMIDE
     Indication: DIFFUSE LARGE B-CELL LYMPHOMA
     Route: 048
     Dates: start: 20100709
  3. ASPIRIN. [Concomitant]
     Active Substance: ASPIRIN
     Indication: PRODUCT USED FOR UNKNOWN INDICATION
     Route: 065

REACTIONS (2)
  - Rectal adenocarcinoma [Recovered/Resolved]
  - Lung adenocarcinoma [Recovered/Resolved]

NARRATIVE: CASE EVENT DATE: 20131204
